FAERS Safety Report 6617219-1 (Version None)
Quarter: 2010Q1

REPORT INFORMATION
  Report Type: 
  Country: None (occurrence: None)
  Receive Date: 20100307
  Receipt Date: 20090202
  Transmission Date: 20100710
  Serious: No
  Sender: FDA-Public Use
  Company Number: CH-BAYER-200833028GPV

PATIENT
  Sex: Female

DRUGS (1)
  1. YASMIN [Suspect]
     Indication: DRUG USE FOR UNKNOWN INDICATION
     Route: 048

REACTIONS (1)
  - UNEVALUABLE EVENT [None]
